FAERS Safety Report 8271207 (Version 4)
Quarter: 2018Q3

REPORT INFORMATION
  Report Type: Report from Study
  Country: US (occurrence: US)
  Receive Date: 20111201
  Receipt Date: 20180710
  Transmission Date: 20181010
  Serious: Yes (Hospitalization, Other)
  Sender: FDA-Public Use
  Company Number: PHHO2010US11609

PATIENT
  Age: 77 Year
  Sex: Female

DRUGS (7)
  1. COMPARATOR TRASTUZUMAB [Suspect]
     Active Substance: TRASTUZUMAB
     Dosage: UNK
     Route: 041
     Dates: start: 20100805
  2. AFINITOR [Suspect]
     Active Substance: EVEROLIMUS
     Dosage: 10 MG, QD
     Route: 048
     Dates: start: 20100803
  3. COMPARATOR PACLITAXEL [Suspect]
     Active Substance: PACLITAXEL
     Indication: BREAST CANCER METASTATIC
     Dosage: UNK
     Route: 041
     Dates: start: 20100414, end: 20100728
  4. AFINITOR [Suspect]
     Active Substance: EVEROLIMUS
     Indication: BREAST CANCER METASTATIC
     Dosage: 10 MG, QD
     Route: 048
     Dates: start: 20100414, end: 20100728
  5. COMPARATOR TRASTUZUMAB [Suspect]
     Active Substance: TRASTUZUMAB
     Indication: BREAST CANCER METASTATIC
     Dosage: UNK
     Route: 041
     Dates: start: 20100414, end: 20100728
  6. COMPARATOR PACLITAXEL [Suspect]
     Active Substance: PACLITAXEL
     Dosage: UNK
     Route: 041
     Dates: start: 20100812
  7. DIURETICS [Concomitant]
     Active Substance: UNSPECIFIED INGREDIENT
     Indication: PRODUCT USED FOR UNKNOWN INDICATION
     Route: 065

REACTIONS (5)
  - Paraesthesia [Recovered/Resolved]
  - Acute kidney injury [Recovered/Resolved]
  - Anaemia [Recovered/Resolved]
  - Muscular weakness [Recovered/Resolved]
  - Dizziness [Recovered/Resolved]

NARRATIVE: CASE EVENT DATE: 20100728
